FAERS Safety Report 9811900 (Version 2)
Quarter: 2015Q4

REPORT INFORMATION
  Report Type: Spontaneous
  Country: US (occurrence: US)
  Receive Date: 20140110
  Receipt Date: 20151228
  Transmission Date: 20160305
  Serious: Yes (Other)
  Sender: FDA-Public Use
  Company Number: US-SANOFI-AVENTIS-2013SA068541

PATIENT
  Age: 72 Year

DRUGS (1)
  1. PLAVIX [Suspect]
     Active Substance: CLOPIDOGREL BISULFATE
     Indication: STENT PLACEMENT
     Route: 065
     Dates: start: 20100301, end: 20111118

REACTIONS (8)
  - Activities of daily living impaired [Unknown]
  - Ulcer haemorrhage [Unknown]
  - Cerebral haemorrhage [Recovered/Resolved]
  - Gastrointestinal haemorrhage [Recovered/Resolved]
  - Thrombotic thrombocytopenic purpura [Unknown]
  - Asthenia [Unknown]
  - Large intestine polyp [Unknown]
  - Quality of life decreased [Unknown]

NARRATIVE: CASE EVENT DATE: 201111
